FAERS Safety Report 13113499 (Version 5)
Quarter: 2021Q2

REPORT INFORMATION
  Report Type: Spontaneous
  Country: US (occurrence: US)
  Receive Date: 20170113
  Receipt Date: 20210402
  Transmission Date: 20210716
  Serious: Yes (Hospitalization)
  Sender: FDA-Public Use
  Company Number: US-BIOGEN-2013BI037209

PATIENT
  Age: 49 Year
  Sex: Female

DRUGS (4)
  1. TYSABRI [Suspect]
     Active Substance: NATALIZUMAB
     Route: 042
     Dates: start: 20080508, end: 20120405
  2. TYSABRI [Suspect]
     Active Substance: NATALIZUMAB
     Indication: MULTIPLE SCLEROSIS
     Route: 042
     Dates: start: 20050126
  3. TYSABRI [Suspect]
     Active Substance: NATALIZUMAB
     Route: 042
     Dates: start: 20120905, end: 20130320
  4. TYSABRI [Suspect]
     Active Substance: NATALIZUMAB
     Route: 042
     Dates: start: 20060803, end: 20071227

REACTIONS (8)
  - Bronchitis [Unknown]
  - Herpes zoster [Recovered/Resolved]
  - Cellulitis [Unknown]
  - Cerebrovascular accident [Unknown]
  - Pneumonia [Recovered/Resolved]
  - Fall [Not Recovered/Not Resolved]
  - Staphylococcal infection [Recovered/Resolved]
  - Multiple sclerosis [Not Recovered/Not Resolved]

NARRATIVE: CASE EVENT DATE: 2013
